FAERS Safety Report 24010622 (Version 1)
Quarter: 2024Q2

REPORT INFORMATION
  Report Type: Spontaneous
  Country: US (occurrence: None)
  Receive Date: 20240624
  Receipt Date: 20240624
  Transmission Date: 20240716
  Serious: Yes (Death)
  Sender: FDA-Public Use
  Company Number: None

PATIENT
  Age: 60 Year
  Sex: Female

DRUGS (13)
  1. ENTECAVIR [Suspect]
     Active Substance: ENTECAVIR
     Dosage: 0.5 MG DAILY ORAL
     Route: 048
  2. albuterol HFA INH [Concomitant]
  3. ATORVASTATIN [Concomitant]
     Active Substance: ATORVASTATIN
  4. CETIRIZINE [Concomitant]
     Active Substance: CETIRIZINE HYDROCHLORIDE
  5. CLOPIDOGREL [Concomitant]
     Active Substance: CLOPIDOGREL BISULFATE
  6. FAMOTIDINE [Concomitant]
     Active Substance: FAMOTIDINE
  7. FLUTICASONE [Concomitant]
     Active Substance: FLUTICASONE
  8. IBUPROFEN [Concomitant]
     Active Substance: IBUPROFEN
  9. lidocaine %5 topical ointment [Concomitant]
  10. symbicort 80/4.5 mcg (120 oral INH) [Concomitant]
  11. PROTONIX [Concomitant]
     Active Substance: PANTOPRAZOLE SODIUM
  12. TRIAMCINOLONE ACETONIDE [Concomitant]
     Active Substance: TRIAMCINOLONE ACETONIDE
  13. vitamin D 1,000 IU softgel [Concomitant]

REACTIONS (1)
  - Death [None]

NARRATIVE: CASE EVENT DATE: 20240620
